FAERS Safety Report 19757522 (Version 2)
Quarter: 2022Q4

REPORT INFORMATION
  Report Type: Spontaneous
  Country: DE (occurrence: DE)
  Receive Date: 20210828
  Receipt Date: 20221202
  Transmission Date: 20230112
  Serious: Yes (Hospitalization)
  Sender: FDA-Public Use
  Company Number: None

PATIENT
  Age: 45 Year
  Sex: Female
  Weight: 80 kg

DRUGS (10)
  1. CLOPIDOGREL [Suspect]
     Active Substance: CLOPIDOGREL BISULFATE
     Indication: Product used for unknown indication
     Dosage: 2-0-0-0
     Route: 048
  2. ASPIRIN [Suspect]
     Active Substance: ASPIRIN
     Indication: Product used for unknown indication
     Dosage: 100 MG, 0-1-0-0
     Route: 048
  3. AMLODIPINE [Concomitant]
     Active Substance: AMLODIPINE BESYLATE
     Dosage: 5 MG, 1-0-1-0
     Route: 048
  4. ATORVASTATIN [Concomitant]
     Active Substance: ATORVASTATIN
     Dosage: 80 MG, 0-0-1-0
     Route: 048
  5. CANDESARTAN AUROBINDO [Concomitant]
     Dosage: 16MG / 12.5MG 1-0-1-0,
     Route: 048
  6. HUMALOG [Concomitant]
     Active Substance: INSULIN LISPRO
     Dosage: 100 / 1 IU / ML, 6-6-0-0,
     Route: 058
  7. METOPROLOL [Concomitant]
     Active Substance: METOPROLOL
     Dosage: 1-0-1-0
     Route: 048
  8. MOXONIDINE [Concomitant]
     Active Substance: MOXONIDINE
     Dosage: 1-0-1-0
     Route: 048
  9. LEVEMIR [Concomitant]
     Active Substance: INSULIN DETEMIR
     Dosage: 300 / 3 IU / ML, 0-0-0-12
     Route: 058
  10. VICTOZA [Concomitant]
     Active Substance: LIRAGLUTIDE
     Dosage: 18 / 3 MG / ML, 1-0-0-0
     Route: 058

REACTIONS (4)
  - Cerebrovascular accident [Unknown]
  - Malaise [Unknown]
  - Presyncope [Unknown]
  - Duodenal ulcer haemorrhage [Unknown]
